FAERS Safety Report 5243207-6 (Version None)
Quarter: 2007Q1

REPORT INFORMATION
  Report Type: 
  Country: None (occurrence: None)
  Receive Date: 20070215
  Receipt Date: 20070205
  Transmission Date: 20070707
  Serious: Yes (Other)
  Sender: FDA-Public Use
  Company Number: 2007US000261

PATIENT
  Age: 51 Year
  Sex: Male

DRUGS (1)
  1. AMBISOME [Suspect]
     Indication: ANTIFUNGAL PROPHYLAXIS
     Dosage: 24 MG, UNK, RESPIRATORY
     Route: 055
     Dates: start: 20060410

REACTIONS (6)
  - ALPHA HAEMOLYTIC STREPTOCOCCAL INFECTION [None]
  - BACTERAEMIA [None]
  - CATHETER RELATED INFECTION [None]
  - HERPES VIRUS INFECTION [None]
  - NECROTISING RETINITIS [None]
  - NEUTROPENIA [None]
